FAERS Safety Report 25755364 (Version 2)
Quarter: 2025Q4

REPORT INFORMATION
  Report Type: Report from Study
  Country: US (occurrence: US)
  Receive Date: 20250903
  Receipt Date: 20251014
  Transmission Date: 20260117
  Serious: Yes (Other)
  Sender: MALLINCKRODT
  Company Number: US-MALLINCKRODT-MNK202505097

PATIENT
  Sex: Male

DRUGS (1)
  1. CORTICOTROPIN [Suspect]
     Active Substance: CORTICOTROPIN
     Indication: Iridocyclitis
     Dosage: 80 UNITS

REACTIONS (11)
  - Pulmonary sarcoidosis [Unknown]
  - Adrenal insufficiency [Unknown]
  - Contusion [Unknown]
  - Scar [Unknown]
  - Joint injury [Unknown]
  - Inflammation [Unknown]
  - Cortisol decreased [Unknown]
  - Injection site bruising [Unknown]
  - Injection site discolouration [Unknown]
  - Impaired healing [Unknown]
  - Asthenia [Unknown]
